FAERS Safety Report 5369000-1 (Version None)
Quarter: 2007Q2

REPORT INFORMATION
  Report Type: 
  Country: None (occurrence: None)
  Receive Date: 20070625
  Receipt Date: 20061201
  Transmission Date: 20071010
  Serious: Yes (Other)
  Sender: FDA-Public Use
  Company Number: US-ASTRAZENECA-2006UW26896

PATIENT
  Sex: Male

DRUGS (4)
  1. CRESTOR [Suspect]
     Route: 048
  2. NIACIN [Suspect]
  3. WELCHOL [Suspect]
  4. TOPROL-XL [Suspect]
     Route: 048

REACTIONS (1)
  - HEPATITIS VIRAL [None]
